FAERS Safety Report 5164955-2 (Version None)
Quarter: 2006Q4

REPORT INFORMATION
  Report Type: 
  Country: None (occurrence: None)
  Receive Date: 20061205
  Receipt Date: 20020918
  Transmission Date: 20070319
  Serious: Yes (Hospitalization)
  Sender: FDA-Public Use
  Company Number: US-BRISTOL-MYERS SQUIBB COMPANY-12046710

PATIENT
  Age: 24 Hour
  Sex: Male
  Weight: 4 kg

DRUGS (6)
  1. ZERIT [Suspect]
     Dosage: EXPOSURE DURING GESTATION.
     Route: 064
  2. RETROVIR [Suspect]
     Dosage: EXPOSURE DURING GESTATION, THEN ORALLY FROM BIRTH FOR APPROXIMATELY 6 WEEKS
     Route: 064
  3. CRIXIVAN [Suspect]
     Dosage: EXPOSURE DURING GESTATION.
     Route: 064
  4. EPIVIR [Suspect]
     Dosage: EXPOSURE DURING GESTATION, THEN ORALLY FOR APPROXIMATELY 6 WEEKS
     Route: 064
  5. RETROVIR [Suspect]
     Dosage: DOSAGE 0.7 ML X 4
     Route: 048
     Dates: start: 19980716
  6. EPIVIR [Suspect]
     Dosage: DOSAGE 0.7 ML X 2
     Route: 048
     Dates: start: 19980716

REACTIONS (7)
  - ANAEMIA MACROCYTIC [None]
  - BLOOD LACTIC ACID INCREASED [None]
  - GASTRITIS [None]
  - HYPERTRIGLYCERIDAEMIA [None]
  - NEUTROPENIA [None]
  - OESOPHAGITIS [None]
  - PREGNANCY [None]
